FAERS Safety Report 16961404 (Version 3)
Quarter: 2020Q1

REPORT INFORMATION
  Report Type: Spontaneous
  Country: US (occurrence: US)
  Receive Date: 20191025
  Receipt Date: 20200207
  Transmission Date: 20200409
  Serious: No
  Sender: FDA-Public Use
  Company Number: US-TAKEDA-2019TUS058461

PATIENT
  Age: 70 Year
  Sex: Male
  Weight: 92.9 kg

DRUGS (6)
  1. NINLARO [Suspect]
     Active Substance: IXAZOMIB CITRATE
     Dosage: 3 MILLIGRAM
     Route: 048
  2. NINLARO [Suspect]
     Active Substance: IXAZOMIB CITRATE
     Indication: PLASMA CELL MYELOMA
     Dosage: 4 MILLIGRAM
     Route: 048
     Dates: start: 201811
  3. DEXAMETHASONE. [Suspect]
     Active Substance: DEXAMETHASONE
     Indication: PLASMA CELL MYELOMA
     Dosage: 20 MILLIGRAM, 1/WEEK
     Route: 048
     Dates: start: 201811, end: 201912
  4. NINLARO [Suspect]
     Active Substance: IXAZOMIB CITRATE
     Dosage: 2 MILLIGRAM
     Route: 048
     Dates: end: 201912
  5. POMALIDOMIDE [Suspect]
     Active Substance: POMALIDOMIDE
     Indication: PLASMA CELL MYELOMA
     Dosage: 3 MILLIGRAM
     Route: 048
     Dates: start: 201905, end: 201912
  6. LENALIDOMIDE [Suspect]
     Active Substance: LENALIDOMIDE
     Indication: PLASMA CELL MYELOMA
     Dosage: 15 MILLIGRAM, QOD
     Route: 048
     Dates: start: 201811, end: 201905

REACTIONS (2)
  - Conjunctivitis [Recovered/Resolved]
  - Off label use [Unknown]

NARRATIVE: CASE EVENT DATE: 20190115
